FAERS Safety Report 9370069 (Version 1)
Quarter: 2013Q2

REPORT INFORMATION
  Report Type: Spontaneous
  Country: US (occurrence: None)
  Receive Date: 20130621
  Receipt Date: 20130621
  Transmission Date: 20140414
  Serious: Yes (Other)
  Sender: FDA-Public Use
  Company Number: 1718112

PATIENT
  Age: 28 Year
  Sex: Female
  Weight: 85.2 kg

DRUGS (8)
  1. SODIUM CHLORIDE [Suspect]
     Indication: MEDICATION DILUTION
     Dosage: 1 HOUR
     Route: 042
     Dates: start: 20130514, end: 20130515
  2. PROMETHAZINE HYDROCHLORIDE [Suspect]
     Indication: NAUSEA
     Dosage: 1 HOUR
     Route: 042
     Dates: start: 20130514, end: 20130515
  3. PROMETHAZINE HYDROCHLORIDE [Suspect]
     Indication: NAUSEA
     Dosage: 1 HOUR
     Route: 042
     Dates: start: 20130514, end: 20130515
  4. CEFTRIAXONE SODIUM [Suspect]
     Indication: PYELONEPHRITIS
     Dosage: 1G/50 ML NS, 1 HOUR
     Route: 041
     Dates: start: 20130514
  5. ACETAMINOPHEN [Concomitant]
  6. DOCUSATE [Concomitant]
  7. FAMOTIDINE [Concomitant]
  8. FERROUS SULFATE [Concomitant]

REACTIONS (5)
  - Infusion site pain [None]
  - Product deposit [None]
  - Product reconstitution issue [None]
  - Nausea [None]
  - Incorrect product storage [None]
